FAERS Safety Report 5801926-4 (Version None)
Quarter: 2008Q3

REPORT INFORMATION
  Report Type: 
  Country: None (occurrence: None)
  Receive Date: 20080707
  Receipt Date: 20080627
  Transmission Date: 20090109
  Serious: Yes (Other)
  Sender: FDA-Public Use
  Company Number: FR-ASTRAZENECA-2008CG00635

PATIENT
  Age: 781 Month
  Sex: Male
  Weight: 86.2 kg

DRUGS (7)
  1. CRESTOR [Suspect]
     Indication: HYPERCHOLESTEROLAEMIA
     Route: 048
     Dates: start: 20070801, end: 20080401
  2. TAHOR [Suspect]
     Indication: HYPERCHOLESTEROLAEMIA
     Route: 048
     Dates: start: 20040101, end: 20070801
  3. RENITEC [Concomitant]
     Indication: HYPERTENSION
     Route: 048
     Dates: start: 20000101
  4. ATHYMIL [Concomitant]
     Indication: DEPRESSION
     Route: 048
     Dates: start: 20000101
  5. ZOXAN [Concomitant]
     Indication: PROSTATISM
     Route: 048
     Dates: start: 20030101
  6. ZOLPIDEM TARTRATE [Concomitant]
     Indication: INSOMNIA
     Route: 048
     Dates: start: 20030101
  7. ALLOPURINOL [Concomitant]
     Indication: GOUT
     Route: 048
     Dates: start: 20000101

REACTIONS (1)
  - PANCREATITIS [None]
